FAERS Safety Report 25112752 (Version 2)
Quarter: 2025Q1

REPORT INFORMATION
  Report Type: Spontaneous
  Country: US (occurrence: US)
  Receive Date: 20250324
  Receipt Date: 20250325
  Transmission Date: 20250408
  Serious: No
  Sender: UCB
  Company Number: US-UCBSA-2024065581

PATIENT
  Age: 29 Year
  Sex: Male

DRUGS (1)
  1. BIMZELX [Suspect]
     Active Substance: BIMEKIZUMAB-BKZX
     Indication: Product used for unknown indication
     Dates: start: 202410

REACTIONS (2)
  - Fungal infection [Unknown]
  - Oesophagitis [Unknown]

NARRATIVE: CASE EVENT DATE: 20241101
